FAERS Safety Report 8952774 (Version 5)
Quarter: 2013Q4

REPORT INFORMATION
  Report Type: Spontaneous
  Country: GB (occurrence: GB)
  Receive Date: 20121204
  Receipt Date: 20131226
  Transmission Date: 20140711
  Serious: Yes (Other)
  Sender: FDA-Public Use
  Company Number: GB-ROCHE-1161383

PATIENT
  Age: 22 Year
  Sex: Male

DRUGS (1)
  1. ROACCUTANE [Suspect]
     Indication: PRODUCT USED FOR UNKNOWN INDICATION
     Route: 065
     Dates: start: 200512, end: 200605

REACTIONS (33)
  - Depression [Recovered/Resolved]
  - Suicidal ideation [Recovered/Resolved]
  - Erectile dysfunction [Unknown]
  - Immunodeficiency [Unknown]
  - Hyperthyroidism [Unknown]
  - Homicidal ideation [Unknown]
  - Erectile dysfunction [Not Recovered/Not Resolved]
  - Anger [Unknown]
  - Irritability [Unknown]
  - Anxiety [Unknown]
  - Feeling abnormal [Unknown]
  - Injury [Unknown]
  - Dry eye [Unknown]
  - Foreign body sensation in eyes [Unknown]
  - Vision blurred [Unknown]
  - Dry mouth [Unknown]
  - Tooth disorder [Unknown]
  - Gingival disorder [Unknown]
  - Fatigue [Unknown]
  - Malaise [Unknown]
  - Hair growth abnormal [Unknown]
  - Dyspepsia [Unknown]
  - Constipation [Unknown]
  - Haemorrhoids [Unknown]
  - Hyperhidrosis [Unknown]
  - Alopecia [Unknown]
  - Back pain [Unknown]
  - Disturbance in attention [Unknown]
  - Memory impairment [Unknown]
  - Dental caries [Unknown]
  - Decreased appetite [Unknown]
  - Eye pain [Unknown]
  - Vitreous floaters [Unknown]
